FAERS Safety Report 5302911-1 (Version None)
Quarter: 2007Q2

REPORT INFORMATION
  Report Type: 
  Country: None (occurrence: None)
  Receive Date: 20070419
  Receipt Date: 20070419
  Transmission Date: 20071010
  Serious: Yes (Hospitalization)
  Sender: FDA-Public Use
  Company Number: None

PATIENT
  Sex: Male
  Weight: 73.9 kg

DRUGS (7)
  1. CYTARABINE [Suspect]
     Dosage: 3110 MG
  2. DAUNORUBICIN HCL [Suspect]
     Dosage: 285 MG
  3. DAUNORUBICIN HCL [Suspect]
  4. ETOPOSIDE [Suspect]
     Dosage: 950 MG
  5. TOBRAMYCIN [Concomitant]
  6. VANCOMYCIN [Concomitant]
  7. VORICONAZOLE [Concomitant]

REACTIONS (4)
  - BLOOD CREATINE PHOSPHOKINASE INCREASED [None]
  - DIALYSIS [None]
  - RENAL FAILURE ACUTE [None]
  - SEPSIS [None]
